FAERS Safety Report 7813838-5 (Version None)
Quarter: 2011Q4

REPORT INFORMATION
  Report Type: 
  Country: None (occurrence: None)
  Receive Date: 20111014
  Receipt Date: 20111007
  Transmission Date: 20120403
  Serious: Yes (Other)
  Sender: FDA-Public Use
  Company Number: CA-JNJFOC-20110506008

PATIENT
  Sex: Male
  Weight: 96.16 kg

DRUGS (2)
  1. STELARA [Suspect]
     Indication: PSORIASIS
     Route: 058
     Dates: start: 20110101
  2. STELARA [Suspect]
     Route: 058
     Dates: start: 20110214

REACTIONS (1)
  - ERYSIPELAS [None]
